FAERS Safety Report 4524548-4 (Version None)
Quarter: 2005Q1

REPORT INFORMATION
  Report Type: 
  Country: None (occurrence: None)
  Receive Date: 20041117
  Receipt Date: 20040602
  Transmission Date: 20050727
  Serious: Yes (Disabling, Other)
  Sender: FDA-Public Use
  Company Number: US-JNJFOC-20040303770

PATIENT
  Age: 76 Year
  Sex: Male

DRUGS (9)
  1. LEVAQUIN [Suspect]
     Indication: INFECTION PROPHYLAXIS
     Dosage: 500 MG, ORAL
     Route: 048
     Dates: start: 20031219, end: 20031220
  2. TOPROL (METOPROLOL SUCCINATE [Concomitant]
  3. ATACAND [Concomitant]
  4. TAMBICOR (FLECAINIDE ACETATE [Concomitant]
  5. DIGITEC (DIGOXIN) [Concomitant]
  6. COUMADIN [Concomitant]
  7. CARDIZEM CD [Concomitant]
  8. NASACORT [Concomitant]
  9. PREDNISONE [Concomitant]

REACTIONS (1)
  - TENDON RUPTURE [None]
